FAERS Safety Report 6274315-9 (Version None)
Quarter: 2009Q3

REPORT INFORMATION
  Report Type: 
  Country: None (occurrence: None)
  Receive Date: 20090720
  Receipt Date: 20090710
  Transmission Date: 20100115
  Serious: Yes (Hospitalization, Other)
  Sender: FDA-Public Use
  Company Number: US-ABBOTT-09P-163-0584717-00

PATIENT
  Sex: Female
  Weight: 63.56 kg

DRUGS (1)
  1. HUMIRA [Suspect]
     Indication: CROHN'S DISEASE
     Route: 058
     Dates: start: 20090313

REACTIONS (9)
  - BACK PAIN [None]
  - BLOOD POTASSIUM DECREASED [None]
  - DEHYDRATION [None]
  - HEADACHE [None]
  - INTERVERTEBRAL DISC PROTRUSION [None]
  - INTRACRANIAL HYPOTENSION [None]
  - STAPHYLOCOCCAL INFECTION [None]
  - SYNOVIAL CYST [None]
  - VOMITING [None]
